FAERS Safety Report 6260643-X (Version None)
Quarter: 2009Q3

REPORT INFORMATION
  Report Type: 
  Country: None (occurrence: None)
  Receive Date: 20090706
  Receipt Date: 20090623
  Transmission Date: 20100115
  Serious: Yes (Hospitalization, Other)
  Sender: FDA-Public Use
  Company Number: 2009AL004240

PATIENT
  Age: 62 Year
  Sex: Female

DRUGS (5)
  1. TRAMADOL HCL [Suspect]
     Indication: BACK PAIN
  2. CLOZARIL [Concomitant]
  3. OMEPRAZOLE [Concomitant]
  4. ATORVASTATIN CALCIUM [Concomitant]
  5. ISOSORBIDE MONONITRATE [Concomitant]

REACTIONS (7)
  - ANAEMIA [None]
  - BLOOD PRESSURE FLUCTUATION [None]
  - DRUG DOSE OMISSION [None]
  - GASTROINTESTINAL HAEMORRHAGE [None]
  - NEUTROPHIL COUNT INCREASED [None]
  - PLATELET COUNT INCREASED [None]
  - WHITE BLOOD CELL COUNT INCREASED [None]
